FAERS Safety Report 16900951 (Version 2)
Quarter: 2019Q4

REPORT INFORMATION
  Report Type: Report from Study
  Country: US (occurrence: US)
  Receive Date: 20191009
  Receipt Date: 20191025
  Transmission Date: 20200122
  Serious: Yes (Hospitalization, Other)
  Sender: FDA-Public Use
  Company Number: US-GLAXOSMITHKLINE-2019-TSO02968-US

PATIENT
  Age: 78 Year
  Sex: Female

DRUGS (32)
  1. COBIMETINIB. [Suspect]
     Active Substance: COBIMETINIB
     Indication: OVARIAN CANCER
     Dosage: MOST RECENT DOSE ON 09/JUL/2019, 40 MG (60 MG,1 IN 1 D)
     Route: 048
     Dates: start: 20190312
  2. POTASSIUM CHLORIDE. [Concomitant]
     Active Substance: POTASSIUM CHLORIDE
     Indication: HYPOKALAEMIA
     Dosage: 10 ?G, 1 IN 1 D
     Route: 048
     Dates: start: 2016
  3. COMPAZINE                          /00013302/ [Concomitant]
     Active Substance: PROCHLORPERAZINE EDISYLATE
     Indication: NAUSEA
     Dosage: (10 MG,1 IN 1 AS REQUIRED)
     Route: 048
     Dates: start: 20190405
  4. METOPROLOL. [Concomitant]
     Active Substance: METOPROLOL
     Indication: HYPERTENSION
     Dosage: 100 MG, 1 IN 1 D
     Route: 048
     Dates: start: 20180814
  5. MONTELUKAST [Concomitant]
     Active Substance: MONTELUKAST SODIUM
     Indication: CHRONIC SINUSITIS
     Dosage: 10 MG,1 IN 1 D
     Route: 048
     Dates: start: 2009
  6. SERTRALINE [Concomitant]
     Active Substance: SERTRALINE HYDROCHLORIDE
     Indication: DEPRESSION
     Dosage: 25 MG, 1 IN 1 D
     Route: 048
     Dates: start: 201609
  7. DECADRON [Concomitant]
     Active Substance: DEXAMETHASONE
     Indication: NAUSEA
     Dosage: 2 MG, 1 IN 1 D
     Route: 048
     Dates: start: 20190319
  8. IMODIUM [Concomitant]
     Active Substance: LOPERAMIDE HYDROCHLORIDE
     Indication: DIARRHOEA
     Dosage: 2 MG,1 IN 1 AS REQUIRED
     Route: 048
     Dates: start: 20190314
  9. IMODIUM [Concomitant]
     Active Substance: LOPERAMIDE HYDROCHLORIDE
     Indication: PROPHYLAXIS
  10. LOMOTIL [Concomitant]
     Active Substance: ATROPINE SULFATE\DIPHENOXYLATE HYDROCHLORIDE
     Indication: DIARRHOEA
     Dosage: 1 TABLET (3 IN 1 D)
     Route: 048
     Dates: start: 20190319
  11. HYDROCHLOROTHIAZIDE. [Concomitant]
     Active Substance: HYDROCHLOROTHIAZIDE
     Indication: PROPHYLAXIS
  12. ATORVASTATIN [Concomitant]
     Active Substance: ATORVASTATIN
     Indication: BLOOD CHOLESTEROL INCREASED
     Dosage: 40 MG,1 IN 1 D
     Route: 048
     Dates: start: 2016
  13. HEART HEALTH [Concomitant]
     Indication: PROPHYLAXIS
     Dosage: 2 TABLET (1 IN 1D)
     Route: 048
     Dates: start: 2016
  14. BIOTIN [Concomitant]
     Active Substance: BIOTIN
     Indication: PRODUCT USED FOR UNKNOWN INDICATION
     Dosage: 1 TABLET (1 IN 1 D)
     Route: 048
     Dates: start: 2016
  15. ATIVAN [Concomitant]
     Active Substance: LORAZEPAM
     Indication: NAUSEA
     Dosage: 0.5 MG 2 IN 1 D
     Route: 048
     Dates: start: 20190319
  16. PEPCID                             /00305201/ [Concomitant]
     Active Substance: ALUMINUM HYDROXIDE\MAGNESIUM CARBONATE
     Indication: PROPHYLAXIS
     Dosage: 20 MG,1 IN 1 D
     Route: 048
     Dates: start: 20190319
  17. NORMAL SALINE [Concomitant]
     Active Substance: SODIUM CHLORIDE
     Indication: PROPHYLAXIS
  18. NYSTATIN. [Concomitant]
     Active Substance: NYSTATIN
     Indication: CANDIDA INFECTION
     Dosage: (5 ML,4 IN 1 D)UNK
     Dates: start: 20190407
  19. PLAVIX [Concomitant]
     Active Substance: CLOPIDOGREL BISULFATE
     Indication: PROPHYLAXIS
     Dosage: 75 MG,1 IN 1 D
     Route: 048
     Dates: start: 20161007
  20. ASPIRIN                            /00002701/ [Concomitant]
     Active Substance: ASPIRIN
     Indication: PROPHYLAXIS
     Dosage: 81 MG, 1 IN 1 D
     Route: 048
     Dates: start: 20161007
  21. ZOFRAN [Concomitant]
     Active Substance: ONDANSETRON HYDROCHLORIDE
     Indication: PRODUCT USED FOR UNKNOWN INDICATION
     Dosage: 4 MG, 1 IN 1 AS REQUIRED
     Route: 048
     Dates: start: 20190315
  22. NORMAL SALINE [Concomitant]
     Active Substance: SODIUM CHLORIDE
     Indication: DEHYDRATION
     Dosage: DOSE 1 (1 IN 1 WK)
     Route: 042
     Dates: start: 20190319
  23. LOSARTAN. [Concomitant]
     Active Substance: LOSARTAN
     Indication: HYPERTENSION
     Dosage: (75 MG,1 IN 1 D)
     Route: 048
     Dates: start: 20190523
  24. ZOLPIDEM [Concomitant]
     Active Substance: ZOLPIDEM TARTRATE
     Indication: INSOMNIA
     Dosage: 5 MG,1 IN 1 AS REQUIRED
     Route: 048
     Dates: start: 20180819
  25. HYDROCHLOROTHIAZIDE. [Concomitant]
     Active Substance: HYDROCHLOROTHIAZIDE
     Indication: HYPERTENSION
     Dosage: (12.5 MG,1 IN 1 D)
     Route: 048
     Dates: start: 20190313
  26. MACROBID [Concomitant]
     Active Substance: NITROFURANTOIN\NITROFURANTOIN MONOHYDRATE
     Indication: URINARY TRACT INFECTION
     Dosage: (100 MG,2 IN 1 D)
     Route: 048
     Dates: start: 20190407
  27. CYANOCOBALAMIN. [Concomitant]
     Active Substance: CYANOCOBALAMIN
     Indication: PROPHYLAXIS
     Dosage: 1000 ?G, 1 IN 1 D
     Route: 048
     Dates: start: 20161007
  28. ZOFRAN [Concomitant]
     Active Substance: ONDANSETRON HYDROCHLORIDE
     Dosage: 8 MG,1 IN 1 AS REQUIRED
     Route: 048
     Dates: start: 20190319
  29. NIRAPARIB [Suspect]
     Active Substance: NIRAPARIB
     Indication: OVARIAN CANCER
     Dosage: MOST RECENT DOSE ON 08/JUL/2019, 100 MG (200 MG,1 IN 1 D)
     Route: 048
     Dates: start: 20190312
  30. COBIMETINIB. [Suspect]
     Active Substance: COBIMETINIB
     Dosage: 60 MG,1 IN 1 D
     Route: 048
     Dates: start: 20190709
  31. MAGIC MOUTHWASH [Concomitant]
     Active Substance: DIPHENHYDRAMINE HYDROCHLORIDE\LIDOCAINE HYDROCHLORIDE\NYSTATIN
     Indication: CANDIDA INFECTION
     Dosage: (5 ML,4 IN 1 D)
     Route: 048
     Dates: start: 20190408
  32. CALCIUM 600 + D [Concomitant]
     Active Substance: CALCIUM\VITAMIN D
     Indication: PROPHYLAXIS
     Dosage: 1 IN 1 D
     Route: 048
     Dates: start: 20161012

REACTIONS (1)
  - Hip fracture [Recovered/Resolved]

NARRATIVE: CASE EVENT DATE: 20190806
